FAERS Safety Report 9437666 (Version 1)
Quarter: 2013Q3

REPORT INFORMATION
  Report Type: Spontaneous
  Country: US (occurrence: US)
  Receive Date: 20130802
  Receipt Date: 20130802
  Transmission Date: 20140515
  Serious: Yes (Hospitalization, Other)
  Sender: FDA-Public Use
  Company Number: PHHY2013US079967

PATIENT
  Age: 65 Year
  Sex: Male

DRUGS (2)
  1. SIMVASTATIN [Suspect]
     Indication: HYPERLIPIDAEMIA
     Dosage: 40 MG, UNK
     Route: 048
  2. VORICONAZOLE [Interacting]
     Indication: INFECTION PROPHYLAXIS
     Dosage: 200 MG, BID
     Route: 048

REACTIONS (7)
  - Dyspnoea [Unknown]
  - Rhabdomyolysis [Recovered/Resolved]
  - Fatigue [Recovered/Resolved]
  - Asthenia [Recovered/Resolved]
  - Chest discomfort [Unknown]
  - Cough [Recovered/Resolved]
  - Drug interaction [Unknown]
